FAERS Safety Report 7083277-6 (Version None)
Quarter: 2010Q4

REPORT INFORMATION
  Report Type: 
  Country: None (occurrence: None)
  Receive Date: 20101104
  Receipt Date: 20100924
  Transmission Date: 20110411
  Serious: Yes (Hospitalization, Other)
  Sender: FDA-Public Use
  Company Number: PHEH2009US03889

PATIENT
  Sex: Male

DRUGS (13)
  1. AREDIA [Suspect]
  2. ZOMETA [Suspect]
  3. CADUET [Concomitant]
  4. AVALIDE [Concomitant]
  5. FLUCONAZOLE [Concomitant]
  6. COREG [Concomitant]
  7. CYMBALTA [Concomitant]
  8. LORAZEPAM [Concomitant]
  9. BENAZEPRIL HYDROCHLORIDE [Concomitant]
  10. NALOXONE [Concomitant]
  11. ENTOCORT EC [Concomitant]
  12. PIPERACILLIN [Concomitant]
  13. MORPHINE SULFATE [Concomitant]

REACTIONS (45)
  - ANXIETY [None]
  - ARTHRALGIA [None]
  - BLOOD CALCIUM INCREASED [None]
  - BLOOD MAGNESIUM DECREASED [None]
  - BLOOD SODIUM DECREASED [None]
  - BONE DISORDER [None]
  - CANDIDIASIS [None]
  - CARDIOMYOPATHY [None]
  - CYST [None]
  - CYTOMEGALOVIRUS INFECTION [None]
  - DECREASED INTEREST [None]
  - DEHYDRATION [None]
  - DIABETES MELLITUS [None]
  - DIARRHOEA [None]
  - EJECTION FRACTION [None]
  - EXTRASYSTOLES [None]
  - EYE LASER SURGERY [None]
  - FATIGUE [None]
  - FOREIGN BODY REACTION [None]
  - GASTROOESOPHAGEAL REFLUX DISEASE [None]
  - GENERAL PHYSICAL HEALTH DETERIORATION [None]
  - GRAFT VERSUS HOST DISEASE [None]
  - HYPERLIPIDAEMIA [None]
  - HYPERTENSION [None]
  - HYPOXIA [None]
  - IMPAIRED GASTRIC EMPTYING [None]
  - IMPAIRED HEALING [None]
  - INFLAMMATION [None]
  - JAW OPERATION [None]
  - LEFT VENTRICULAR DYSFUNCTION [None]
  - LEFT VENTRICULAR HYPERTROPHY [None]
  - METASTASES TO BONE MARROW [None]
  - NEOPLASM MALIGNANT [None]
  - NEUROPATHY PERIPHERAL [None]
  - OSTEOLYSIS [None]
  - OSTEONECROSIS OF JAW [None]
  - OSTEOPOROSIS [None]
  - PAIN [None]
  - PAIN IN JAW [None]
  - PNEUMONIA [None]
  - RASH [None]
  - RENAL FAILURE ACUTE [None]
  - SLEEP APNOEA SYNDROME [None]
  - THROMBOSIS [None]
  - TOOTH EXTRACTION [None]
